FAERS Safety Report 9252235 (Version 1)
Quarter: 2013Q1

REPORT INFORMATION
  Report Type: Spontaneous
  Country: US (occurrence: None)
  Receive Date: 20130305
  Receipt Date: 20130305
  Transmission Date: 20140127
  Serious: Yes (Hospitalization)
  Sender: FDA-Public Use
  Company Number: 163-21880-12083323

PATIENT
  Age: 63 Year
  Sex: Female
  Weight: 87.09 kg

DRUGS (13)
  1. REVLIMID (LENALIDOMIDE) [Suspect]
     Indication: PLASMA CELL MYELOMA
     Route: 048
     Dates: start: 20110501
  2. DEXAMETHASONE (DEXAMETHASONE) [Concomitant]
  3. FLUCONAZOLE (FLUCONAZOLE) [Concomitant]
  4. GABAPENTIN (GABAPENTIN) [Concomitant]
  5. HYDROCHLOROTHIAZIDE (HYDROCHLOROTHIAZIDE) [Concomitant]
  6. HYDROMORPHONE (HYDROMORPHONE) [Concomitant]
  7. JANTOVEN (WARFARIN SODIUM) [Concomitant]
  8. LISINOPRIL (LISINOPRIL) [Concomitant]
  9. PAROXETINE (PAROXETINE) [Concomitant]
  10. PAXIL (PAROXETINE HYDROCHLORIDE) [Concomitant]
  11. POTASSIUM (POTASSIUM) [Concomitant]
  12. STOOL SOFTENER (DOCUSATE SODIUM) [Concomitant]
  13. VALERIAN ROOT (VALERIAN ROOT) [Concomitant]

REACTIONS (1)
  - Pulmonary embolism [None]
